FAERS Safety Report 6748010-3 (Version None)
Quarter: 2010Q2

REPORT INFORMATION
  Report Type: 
  Country: None (occurrence: None)
  Receive Date: 20100528
  Receipt Date: 20100520
  Transmission Date: 20101027
  Serious: Yes (Hospitalization)
  Sender: FDA-Public Use
  Company Number: US-AMGEN-QUU413768

PATIENT
  Sex: Male

DRUGS (1)
  1. ENBREL [Suspect]
     Indication: ANKYLOSING SPONDYLITIS
     Route: 058
     Dates: start: 20030601, end: 20100201

REACTIONS (9)
  - ABDOMINAL PAIN [None]
  - ATRIOVENTRICULAR BLOCK SECOND DEGREE [None]
  - COUGH [None]
  - FALL [None]
  - HIP ARTHROPLASTY [None]
  - NON-HODGKIN'S LYMPHOMA [None]
  - OSTEOARTHRITIS [None]
  - PROSTATOMEGALY [None]
  - SYNCOPE [None]
